FAERS Safety Report 9156162 (Version 1)
Quarter: 2013Q1

REPORT INFORMATION
  Report Type: Spontaneous
  Country: US (occurrence: US)
  Receive Date: 20130311
  Receipt Date: 20130311
  Transmission Date: 20140127
  Serious: Yes (Other)
  Sender: FDA-Public Use
  Company Number: US-BAYER-2013-018750

PATIENT
  Age: 64 Year
  Sex: Female
  Weight: 126.98 kg

DRUGS (9)
  1. XARELTO [Suspect]
     Indication: THROMBOSIS PROPHYLAXIS
     Dosage: 10 MG, UNK
     Route: 048
     Dates: start: 20130202, end: 20130202
  2. XARELTO [Suspect]
     Indication: FOOT OPERATION
  3. ACETYLSALICYLIC ACID [Suspect]
     Indication: THROMBOSIS PROPHYLAXIS
     Route: 065
  4. ACETYLSALICYLIC ACID [Suspect]
     Indication: FOOT OPERATION
  5. CLINDAMYCIN [Concomitant]
  6. ACETAMINOPHEN [Concomitant]
  7. CODEINE [Concomitant]
  8. LISINOPRIL [Concomitant]
  9. METHOTREXATE [Concomitant]

REACTIONS (1)
  - Blood urine present [Recovered/Resolved]
